FAERS Safety Report 11135191 (Version 1)
Quarter: 2015Q2

REPORT INFORMATION
  Report Type: Spontaneous
  Country: US (occurrence: US)
  Receive Date: 20150525
  Receipt Date: 20150525
  Transmission Date: 20150821
  Serious: Yes (Other)
  Sender: FDA-Public Use
  Company Number: US-JNJFOC-20150512462

PATIENT
  Sex: Male
  Weight: 106.14 kg

DRUGS (19)
  1. IMITREX [Concomitant]
     Active Substance: SUMATRIPTAN\SUMATRIPTAN SUCCINATE
     Route: 065
  2. KEFLEX [Concomitant]
     Active Substance: CEPHALEXIN
     Route: 065
  3. ZITHROMAX [Suspect]
     Active Substance: AZITHROMYCIN DIHYDRATE
     Indication: PRODUCT USED FOR UNKNOWN INDICATION
     Route: 065
  4. NYSTATIN. [Concomitant]
     Active Substance: NYSTATIN
  5. MULTIVITAMINS [Concomitant]
     Active Substance: VITAMINS
     Route: 065
  6. CLARITIN [Concomitant]
     Active Substance: LORATADINE
     Route: 065
  7. 5-HTP [Concomitant]
     Active Substance: OXITRIPTAN
     Route: 065
  8. IPRATROPIUM BROMIDE. [Concomitant]
     Active Substance: IPRATROPIUM BROMIDE
     Dosage: 0.03% SOLUTION
     Route: 045
  9. CIPRO [Suspect]
     Active Substance: CIPROFLOXACIN HYDROCHLORIDE
     Indication: PRODUCT USED FOR UNKNOWN INDICATION
     Route: 065
  10. LEVAQUIN [Suspect]
     Active Substance: LEVOFLOXACIN
     Indication: PROSTATITIS
     Route: 048
     Dates: start: 20150102
  11. CODEINE [Suspect]
     Active Substance: CODEINE
     Indication: PRODUCT USED FOR UNKNOWN INDICATION
     Route: 065
  12. VERAMYST [Concomitant]
     Active Substance: FLUTICASONE FUROATE
     Route: 065
  13. VIAGRA [Concomitant]
     Active Substance: SILDENAFIL CITRATE
     Route: 065
  14. ALBUTEROL SULFATE. [Concomitant]
     Active Substance: ALBUTEROL SULFATE
     Route: 065
  15. MEDROL [Concomitant]
     Active Substance: METHYLPREDNISOLONE
     Route: 065
  16. TESSALON [Concomitant]
     Active Substance: BENZONATATE
     Route: 065
  17. TRAMADOL HYDROCHLORIDE. [Concomitant]
     Active Substance: TRAMADOL HYDROCHLORIDE
     Route: 048
  18. ZYRTEC [Concomitant]
     Active Substance: CETIRIZINE HYDROCHLORIDE
  19. ULTRAVATE [Concomitant]
     Active Substance: HALOBETASOL PROPIONATE
     Route: 065

REACTIONS (2)
  - Meniscus injury [Recovering/Resolving]
  - Arthralgia [Recovering/Resolving]
